FAERS Safety Report 5415229-3 (Version None)
Quarter: 2007Q3

REPORT INFORMATION
  Report Type: 
  Country: None (occurrence: None)
  Receive Date: 20070813
  Receipt Date: 20070712
  Transmission Date: 20080115
  Serious: Yes (Hospitalization, Other)
  Sender: FDA-Public Use
  Company Number: 2007RR-08680

PATIENT
  Sex: Male
  Weight: 3.5 kg

DRUGS (7)
  1. AMOXICILLIN [Suspect]
     Dosage: TRANSPLACENTAL
     Route: 064
  2. AMINOPHYLLIN [Suspect]
     Dosage: TRANSPLACENTAL
     Route: 064
  3. ATROVENT [Suspect]
     Dosage: TRANSPLACENTAL
     Route: 064
  4. CLARITHROMYCIN [Suspect]
  5. HYDROCORTISONE [Suspect]
     Dosage: TRANSPLACENTAL
     Route: 064
  6. MAGNESIUM SULFATE [Suspect]
     Dosage: TRANSPLACENTAL
     Route: 064
  7. SALBUTAMOL (SALBUTAMOL) UNKNOWN [Suspect]
     Dosage: 5 MG, TRANSPLACENTAL
     Route: 064

REACTIONS (5)
  - DRUG EXPOSURE DURING PREGNANCY [None]
  - FOETAL DISTRESS SYNDROME [None]
  - FOETAL HEART RATE DECELERATION [None]
  - RESPIRATORY FAILURE [None]
  - TACHYCARDIA FOETAL [None]
